FAERS Safety Report 4806645-9 (Version None)
Quarter: 2005Q4

REPORT INFORMATION
  Report Type: 
  Country: None (occurrence: None)
  Receive Date: 20051019
  Receipt Date: 20050906
  Transmission Date: 20060501
  Serious: Yes (Other)
  Sender: FDA-Public Use
  Company Number: 2005124651

PATIENT
  Age: 77 Year
  Sex: Female
  Weight: 61.2356 kg

DRUGS (3)
  1. BEXTRA [Suspect]
     Indication: PROCEDURAL PAIN
     Dosage: (1 IN 1 D)
     Dates: start: 20020101, end: 20050101
  2. LOTENSIN [Concomitant]
  3. NORVASC [Concomitant]

REACTIONS (5)
  - HORMONE LEVEL ABNORMAL [None]
  - MALAISE [None]
  - MASS [None]
  - SKIN DISCOLOURATION [None]
  - SKIN DISORDER [None]
